FAERS Safety Report 22038141 (Version 1)
Quarter: 2023Q1

REPORT INFORMATION
  Report Type: Spontaneous
  Country: US (occurrence: US)
  Receive Date: 20230227
  Receipt Date: 20230227
  Transmission Date: 20230418
  Serious: No
  Sender: FDA-Public Use
  Company Number: US-IGSA-BIG0018867

PATIENT
  Age: 77 Year
  Sex: Male
  Weight: 86 kg

DRUGS (5)
  1. PROLASTIN-C LIQUID [Suspect]
     Active Substance: .ALPHA.1-PROTEINASE INHIBITOR HUMAN
     Indication: Alpha-1 antitrypsin deficiency
     Dosage: 5160 MILLIGRAM, Q.WK.
     Route: 042
     Dates: start: 20190524
  2. XARELTO [Concomitant]
     Active Substance: RIVAROXABAN
  3. DILTIAZEM HYDROCHLORIDE [Concomitant]
     Active Substance: DILTIAZEM HYDROCHLORIDE
  4. SOTALOL [Concomitant]
     Active Substance: SOTALOL
  5. TAMSULOSIN HYDROCHLORIDE [Concomitant]
     Active Substance: TAMSULOSIN HYDROCHLORIDE

REACTIONS (7)
  - Rash [Not Recovered/Not Resolved]
  - Urticaria [Not Recovered/Not Resolved]
  - Erythema [Not Recovered/Not Resolved]
  - Rash erythematous [Not Recovered/Not Resolved]
  - Rash papular [Not Recovered/Not Resolved]
  - Rash pruritic [Not Recovered/Not Resolved]
  - Condition aggravated [Not Recovered/Not Resolved]

NARRATIVE: CASE EVENT DATE: 20220401
